FAERS Safety Report 5493895-4 (Version None)
Quarter: 2007Q4

REPORT INFORMATION
  Report Type: 
  Country: None (occurrence: None)
  Receive Date: 20071019
  Receipt Date: 20071010
  Transmission Date: 20080405
  Serious: Yes (Other)
  Sender: FDA-Public Use
  Company Number: 06H-163-0310349

PATIENT

DRUGS (5)
  1. MARCAINE AND EPINEPHRINE [Suspect]
     Indication: PROCEDURAL PAIN
     Dosage: 25 ML, INTRA-ARTICULAR; 4.16 CC/HOUR, INTRA-ARTICULAR; 2 D
     Route: 014
  2. MARCAINE AND EPINEPHRINE [Suspect]
     Indication: SURGERY
     Dosage: 25 ML, INTRA-ARTICULAR; 4.16 CC/HOUR, INTRA-ARTICULAR; 2 D
     Route: 014
  3. MORPHINE SULFATE [Concomitant]
  4. LACTARTED RINGER           (RINGER-LACTATE /01126301/) [Concomitant]
  5. ANTIBIOTIC         (ANTIBIOTIC) [Concomitant]

REACTIONS (1)
  - CHONDROLYSIS [None]
